FAERS Safety Report 17962491 (Version 1)
Quarter: 2020Q2

REPORT INFORMATION
  Report Type: Spontaneous
  Country: US (occurrence: US)
  Receive Date: 20200630
  Receipt Date: 20200630
  Transmission Date: 20200714
  Serious: No
  Sender: FDA-Public Use
  Company Number: US-SA-2020SA162680

PATIENT

DRUGS (1)
  1. PRALUENT [Suspect]
     Active Substance: ALIROCUMAB
     Dosage: 300 MG, QM

REACTIONS (3)
  - Injection site rash [Recovering/Resolving]
  - Injection site exfoliation [Recovering/Resolving]
  - Injection site erythema [Recovering/Resolving]
